FAERS Safety Report 11583301 (Version 1)
Quarter: 2015Q3

REPORT INFORMATION
  Report Type: Spontaneous
  Country: US (occurrence: None)
  Receive Date: 20150930
  Receipt Date: 20150930
  Transmission Date: 20151125
  Serious: Yes (Disabling)
  Sender: FDA-Public Use
  Company Number: None

PATIENT
  Age: 70 Year
  Sex: Female
  Weight: 68.04 kg

DRUGS (3)
  1. LEVAQUIN [Suspect]
     Active Substance: LEVOFLOXACIN
     Indication: KIDNEY INFECTION
     Dosage: 1 PILL PER DAY
     Route: 048
     Dates: start: 20150802, end: 20150805
  2. VAGIFEM QOD [Concomitant]
  3. CENTRUM VITS [Concomitant]

REACTIONS (5)
  - Abasia [None]
  - Pain in extremity [None]
  - Toxicity to various agents [None]
  - Impaired work ability [None]
  - Middle insomnia [None]

NARRATIVE: CASE EVENT DATE: 20150805
